FAERS Safety Report 5759435-7 (Version None)
Quarter: 2008Q2

REPORT INFORMATION
  Report Type: 
  Country: None (occurrence: None)
  Receive Date: 20080604
  Receipt Date: 20080604
  Transmission Date: 20081010
  Serious: Yes (Other)
  Sender: FDA-Public Use
  Company Number: None

PATIENT
  Sex: Female
  Weight: 67.1324 kg

DRUGS (1)
  1. DIGITEX, 0.25 MG MYLAN BERTEK [Suspect]
     Indication: CARDIAC FAILURE
     Dosage: 1 PILL 1 X A DAY MOUTH
     Route: 048
     Dates: start: 20041101

REACTIONS (5)
  - ASTHENIA [None]
  - BALANCE DISORDER [None]
  - DIZZINESS [None]
  - FATIGUE [None]
  - HEART RATE IRREGULAR [None]
